FAERS Safety Report 4596678-2 (Version None)
Quarter: 2005Q1

REPORT INFORMATION
  Report Type: 
  Country: None (occurrence: None)
  Receive Date: 20050228
  Receipt Date: 20040608
  Transmission Date: 20050727
  Serious: Yes (Hospitalization)
  Sender: FDA-Public Use
  Company Number: 8160

PATIENT
  Age: 72 Year
  Sex: Male

DRUGS (4)
  1. METHOTREXATE [Suspect]
     Indication: PSORIATIC ARTHROPATHY
     Dosage: 20 MG WEEKLY
     Route: 048
     Dates: start: 19971105, end: 20040501
  2. ETANERCEPT [Suspect]
     Indication: PSORIATIC ARTHROPATHY
     Dosage: 20 MG 2/WK
     Route: 058
     Dates: start: 20040331, end: 20040501
  3. PDEFLAZACORT [Concomitant]
  4. LEFLUNOMIDE [Concomitant]

REACTIONS (5)
  - BONE MARROW DEPRESSION [None]
  - MUCOSAL INFLAMMATION [None]
  - OROPHARYNGITIS FUNGAL [None]
  - PANCYTOPENIA [None]
  - RECTAL HAEMORRHAGE [None]
